FAERS Safety Report 8882566 (Version 1)
Quarter: 2012Q4

REPORT INFORMATION
  Report Type: 
  Country: US (occurrence: US)
  Receive Date: 20121104
  Receipt Date: 20121104
  Transmission Date: 20130627
  Serious: Yes (Hospitalization)
  Sender: FDA-Public Use
  Company Number: US-JNJFOC-20121014315

PATIENT
  Age: 84 None
  Sex: Female
  Weight: 68.04 kg

DRUGS (7)
  1. REMICADE [Suspect]
     Indication: RHEUMATOID ARTHRITIS
     Route: 042
     Dates: start: 20121019
  2. REMICADE [Suspect]
     Indication: RHEUMATOID ARTHRITIS
     Dosage: dose:2 bags of infusion
     Route: 042
     Dates: start: 201208
  3. REMICADE [Suspect]
     Indication: RHEUMATOID ARTHRITIS
     Route: 042
     Dates: start: 2012
  4. BENADRYL [Suspect]
     Indication: PROPHYLAXIS
     Route: 042
     Dates: start: 20121019, end: 20121019
  5. XANAX [Concomitant]
     Route: 048
  6. THYROID THERAPY [Concomitant]
     Indication: THYROID DISORDER
     Route: 048
  7. ZOLOFT [Concomitant]
     Indication: DEPRESSION
     Route: 048

REACTIONS (8)
  - Dehydration [Recovered/Resolved]
  - Diarrhoea [Recovered/Resolved]
  - Vomiting [Recovered/Resolved]
  - Fall [Recovered/Resolved]
  - Arthralgia [Not Recovered/Not Resolved]
  - Rash [Recovered/Resolved]
  - Infusion related reaction [Recovered/Resolved]
  - Asthenia [Not Recovered/Not Resolved]
